FAERS Safety Report 19588459 (Version 4)
Quarter: 2022Q3

REPORT INFORMATION
  Report Type: Report from Study
  Country: GB (occurrence: GB)
  Receive Date: 20210721
  Receipt Date: 20220708
  Transmission Date: 20221026
  Serious: Yes (Hospitalization, Other)
  Sender: FDA-Public Use
  Company Number: None

PATIENT
  Age: 54 Year
  Sex: Female

DRUGS (23)
  1. DOCETAXEL [Suspect]
     Active Substance: DOCETAXEL
     Indication: Breast cancer metastatic
     Dosage: 120 MG, EVERY 3 WEEKS
     Route: 042
     Dates: start: 20170316, end: 20170629
  2. TRASTUZUMAB [Suspect]
     Active Substance: TRASTUZUMAB
     Indication: Breast cancer metastatic
     Dosage: 600 MG EVERY 3 WEEKS
     Route: 058
     Dates: start: 20170316, end: 20171130
  3. PERTUZUMAB [Suspect]
     Active Substance: PERTUZUMAB
     Indication: Product used for unknown indication
     Dosage: 420 MG, EVERY 3 WEEKS
     Route: 042
     Dates: start: 20170406
  4. XGEVA [Suspect]
     Active Substance: DENOSUMAB
     Indication: Bone disorder
     Dosage: 120 MILLIGRAM, Q6WK
     Route: 058
     Dates: start: 20180111
  5. ACETAMINOPHEN [Concomitant]
     Active Substance: ACETAMINOPHEN
     Indication: Premedication
     Dosage: FREQUENCY: ONCE BEFORE TREATMENT
     Route: 048
     Dates: start: 20170316
  6. ONDANSETRON [Concomitant]
     Active Substance: ONDANSETRON
     Indication: Prophylaxis of nausea and vomiting
     Dosage: 8 MG; EVERY 0.5 DAY
     Route: 048
     Dates: start: 20170316
  7. FUSIDATE SODIUM [Concomitant]
     Active Substance: FUSIDATE SODIUM
     Dosage: 2 PERCENT, EVERY 1 DAY?TOPICAL
     Dates: start: 20170324, end: 20170328
  8. APREPITANT [Concomitant]
     Active Substance: APREPITANT
     Indication: Premedication
     Dosage: FREQUENCY: ONCE BEFORE TREATMENT/EVERY 0.5 DAY
     Route: 048
     Dates: start: 20170316
  9. NYSTATIN [Concomitant]
     Active Substance: NYSTATIN
     Dosage: DOSE: 100000 U; EVERY 0.25 DAY
     Route: 048
     Dates: start: 20190603
  10. CHLORPHENIRAMINE MALEATE [Concomitant]
     Active Substance: CHLORPHENIRAMINE MALEATE
     Indication: Premedication
     Dosage: 10 MG, FREQUENCY: ONCE BEFORE TREATMENT
     Route: 042
     Dates: start: 20170316
  11. DALTEPARIN [Concomitant]
     Active Substance: DALTEPARIN
     Indication: Prophylaxis
     Dosage: 2 PERCENT, DAILY?TOPICAL
     Dates: start: 20170327, end: 20170328
  12. DENOSUMAB [Concomitant]
     Active Substance: DENOSUMAB
     Indication: Bone disorder
     Dosage: 120 MG EVERY 6 WEEKS
     Route: 058
     Dates: start: 20180111
  13. DEXAMETHASONE [Concomitant]
     Active Substance: DEXAMETHASONE
     Dosage: 1 MG, DAILY
     Route: 048
     Dates: start: 201811, end: 20181113
  14. GRANISETRON [Concomitant]
     Active Substance: GRANISETRON
     Indication: Premedication
     Dosage: FREQUENCY: ONCE BEFORE TREATMENT
     Route: 042
     Dates: start: 20170316
  15. HYDROCORTISONE [Concomitant]
     Active Substance: HYDROCORTISONE
     Indication: Premedication
     Dosage: FREQUENCY: ONCE BEFORE TREATMENT?TOPICAL
     Dates: start: 2015
  16. METOCLOPRAMIDE [Concomitant]
     Active Substance: METOCLOPRAMIDE
     Indication: Prophylaxis of nausea and vomiting
     Dosage: 10 MG, EVERY 0.33 DAY
     Route: 048
     Dates: start: 20170316
  17. TRASTUZUMAB [Suspect]
     Active Substance: TRASTUZUMAB
     Dosage: 350 MG, EVERY 3 WEEKS, SOLUTION FOR INFUSION ; POWDER FOR MOUTH WASH
     Route: 042
     Dates: start: 20171220
  18. TRASTUZUMAB [Suspect]
     Active Substance: TRASTUZUMAB
     Indication: Breast cancer metastatic
     Dosage: 600 MG EVERY 3 WEEKS
     Route: 058
     Dates: start: 20170316, end: 20171130
  19. DEXAMETHASONE [Concomitant]
     Active Substance: DEXAMETHASONE
     Indication: Premedication
     Dosage: FREQUENCY: ONCE BEFORE TREATMENT
     Route: 042
     Dates: start: 20170316
  20. PERTUZUMAB [Suspect]
     Active Substance: PERTUZUMAB
     Indication: Product used for unknown indication
     Dosage: FREQUENCY: OTHER
     Route: 042
     Dates: start: 20170316, end: 20170316
  21. DEXAMETHASONE [Concomitant]
     Active Substance: DEXAMETHASONE
     Route: 048
     Dates: start: 20181113
  22. DEXAMETHASONE [Concomitant]
     Active Substance: DEXAMETHASONE
     Indication: Prophylaxis of nausea and vomiting
     Route: 048
     Dates: start: 20170315
  23. DEXAMETHASONE [Concomitant]
     Active Substance: DEXAMETHASONE
     Route: 048
     Dates: start: 20190601

REACTIONS (11)
  - Neutropenia [Recovered/Resolved]
  - Malaise [Recovered/Resolved]
  - Haematemesis [Recovered/Resolved]
  - Hypernatraemia [Recovered/Resolved]
  - Onychalgia [Recovered/Resolved]
  - Pain in jaw [Recovered/Resolved]
  - Alopecia [Recovered/Resolved]
  - Nausea [Not Recovered/Not Resolved]
  - Decreased appetite [Not Recovered/Not Resolved]
  - Candida infection [Recovered/Resolved]
  - Fatigue [Recovered/Resolved]

NARRATIVE: CASE EVENT DATE: 20170324
